FAERS Safety Report 7865505-X (Version None)
Quarter: 2011Q4

REPORT INFORMATION
  Report Type: 
  Country: None (occurrence: None)
  Receive Date: 20111028
  Receipt Date: 20110103
  Transmission Date: 20120403
  Serious: No
  Sender: FDA-Public Use
  Company Number: US-GLAXOSMITHKLINE-A0904206A

PATIENT
  Sex: Female

DRUGS (4)
  1. ADVAIR DISKUS 100/50 [Suspect]
     Route: 055
  2. ALVESCO [Suspect]
     Route: 055
  3. ASTEPRO [Suspect]
     Route: 045
  4. ASTELIN [Suspect]
     Route: 045

REACTIONS (3)
  - DRUG INEFFECTIVE [None]
  - WHEEZING [None]
  - RHINORRHOEA [None]
